FAERS Safety Report 6998302-8 (Version None)
Quarter: 2010Q3

REPORT INFORMATION
  Report Type: 
  Country: None (occurrence: None)
  Receive Date: 20100920
  Receipt Date: 20091106
  Transmission Date: 20110219
  Serious: No
  Sender: FDA-Public Use
  Company Number: US-ASTRAZENECA-2009SE25053

PATIENT
  Sex: Male
  Weight: 81.6 kg

DRUGS (6)
  1. SEROQUEL [Suspect]
     Route: 048
  2. EFFEXOR [Concomitant]
  3. DEPAKOTE [Concomitant]
  4. BUSPARIN [Concomitant]
  5. VITAMINS [Concomitant]
  6. ALLERGY MEDICATION [Concomitant]

REACTIONS (3)
  - DIZZINESS [None]
  - DRUG SCREEN FALSE POSITIVE [None]
  - OROPHARYNGEAL PAIN [None]
